FAERS Safety Report 12587869 (Version 1)
Quarter: 2016Q3

REPORT INFORMATION
  Report Type: Spontaneous
  Country: GB (occurrence: GB)
  Receive Date: 20160725
  Receipt Date: 20160725
  Transmission Date: 20161109
  Serious: Yes (Hospitalization, Disabling)
  Sender: FDA-Public Use
  Company Number: GB-NOVOPROD-455685

PATIENT
  Age: 23 Year
  Sex: Female
  Weight: 78.5 kg

DRUGS (4)
  1. TRESIBA [Suspect]
     Active Substance: INSULIN DEGLUDEC
     Dosage: 50 U, QD
     Route: 058
  2. NOVORAPID [Suspect]
     Active Substance: INSULIN ASPART
     Indication: TYPE 1 DIABETES MELLITUS
     Dosage: 40 U, QD
     Route: 058
     Dates: start: 20100908
  3. NOVORAPID [Suspect]
     Active Substance: INSULIN ASPART
     Dosage: 40-48 UNITS WITH MEALS
     Route: 058
  4. TRESIBA [Suspect]
     Active Substance: INSULIN DEGLUDEC
     Indication: TYPE 1 DIABETES MELLITUS
     Dosage: 30 U, QD
     Route: 058
     Dates: start: 20140915

REACTIONS (5)
  - Forceps delivery [Recovered/Resolved]
  - Diabetes mellitus inadequate control [Unknown]
  - Abdominal pain [Recovered/Resolved]
  - Episiotomy [Recovered/Resolved]
  - Exposure during pregnancy [Recovered/Resolved]

NARRATIVE: CASE EVENT DATE: 20150103
